FAERS Safety Report 5942376-X (Version None)
Quarter: 2008Q4

REPORT INFORMATION
  Report Type: 
  Country: None (occurrence: None)
  Receive Date: 20081105
  Receipt Date: 20081103
  Transmission Date: 20090506
  Serious: Yes (Other)
  Sender: FDA-Public Use
  Company Number: US-B.I. PHARMACEUTICALS,INC./RIDGEFIELD-2008-BP-15320PF

PATIENT
  Sex: Female
  Weight: 56 kg

DRUGS (9)
  1. SPIRIVA [Suspect]
     Indication: BRONCHITIS CHRONIC
     Dates: start: 20080829
  2. SPIRIVA [Suspect]
     Indication: CHRONIC OBSTRUCTIVE PULMONARY DISEASE
  3. LYRICA [Suspect]
     Indication: FIBROMYALGIA
     Dosage: 300MG
     Dates: start: 20080829, end: 20081020
  4. EFFEXOR [Suspect]
     Indication: BIPOLAR DISORDER
     Dosage: 150MG
     Dates: start: 20080829
  5. VALIUM [Concomitant]
  6. SOMA [Concomitant]
  7. LORTAB [Concomitant]
  8. REMERON [Concomitant]
     Indication: SLEEP DISORDER
  9. TRAZODONE HCL [Concomitant]
     Indication: SLEEP DISORDER
     Dates: start: 20081022

REACTIONS (9)
  - BACK PAIN [None]
  - CONSTIPATION [None]
  - DYSPNOEA [None]
  - HEADACHE [None]
  - INSOMNIA [None]
  - INTESTINAL FUNCTIONAL DISORDER [None]
  - POLYP [None]
  - SWELLING [None]
  - URINARY TRACT DISORDER [None]
